FAERS Safety Report 9170225 (Version 1)
Quarter: 2013Q1

REPORT INFORMATION
  Report Type: Spontaneous
  Country: BR (occurrence: BR)
  Receive Date: 20130319
  Receipt Date: 20130319
  Transmission Date: 20140127
  Serious: Yes (Death, Other)
  Sender: FDA-Public Use
  Company Number: PHHY2013BR026474

PATIENT
  Sex: Male
  Weight: 65 kg

DRUGS (2)
  1. FORASEQ [Suspect]
     Indication: LUNG DISORDER
     Dosage: 1 DF, BID
     Dates: start: 2004
  2. AMLODIPINE [Concomitant]
     Indication: HYPERTENSION
     Dosage: 5 MG, QD
     Route: 048

REACTIONS (3)
  - Lung infection [Fatal]
  - Bone cancer [Recovering/Resolving]
  - Renal cancer [Not Recovered/Not Resolved]
